FAERS Safety Report 6896420-6 (Version None)
Quarter: 2010Q3

REPORT INFORMATION
  Report Type: 
  Country: None (occurrence: None)
  Receive Date: 20100802
  Receipt Date: 20090223
  Transmission Date: 20110219
  Serious: Yes (Hospitalization, Other)
  Sender: FDA-Public Use
  Company Number: US-PFIZER INC-2009177495

PATIENT
  Sex: Female

DRUGS (4)
  1. NEURONTIN [Suspect]
     Indication: PAIN
     Dosage: UNK
     Dates: start: 20090219
  2. BETASERON [Suspect]
     Indication: RELAPSING-REMITTING MULTIPLE SCLEROSIS
     Dosage: 8 MIU
     Route: 058
     Dates: start: 20060330
  3. BETASERON [Suspect]
     Dosage: UNK
     Route: 058
     Dates: start: 20030722, end: 20060101
  4. LORTAB [Concomitant]
     Indication: PAIN

REACTIONS (10)
  - ABASIA [None]
  - BALANCE DISORDER [None]
  - CEREBROVASCULAR ACCIDENT [None]
  - FALL [None]
  - FEELING ABNORMAL [None]
  - MULTIPLE SCLEROSIS RELAPSE [None]
  - MUSCULAR WEAKNESS [None]
  - MYOCARDIAL INFARCTION [None]
  - SPEECH DISORDER [None]
  - URINARY INCONTINENCE [None]
